FAERS Safety Report 18850391 (Version 3)
Quarter: 2021Q1

REPORT INFORMATION
  Report Type: Spontaneous
  Country: US (occurrence: US)
  Receive Date: 20210205
  Receipt Date: 20210316
  Transmission Date: 20210420
  Serious: No
  Sender: FDA-Public Use
  Company Number: US-HETERO-HET2021US00088

PATIENT

DRUGS (1)
  1. LOSARTAN. [Suspect]
     Active Substance: LOSARTAN
     Indication: HYPERTENSION
     Dosage: 50 MG UNK
     Route: 048
     Dates: start: 20201030, end: 202011

REACTIONS (3)
  - Therapeutic product effect incomplete [Unknown]
  - Product substitution issue [Unknown]
  - Drug resistance [Unknown]
